FAERS Safety Report 10091744 (Version 1)
Quarter: 2014Q2

REPORT INFORMATION
  Report Type: Spontaneous
  Country: US (occurrence: US)
  Receive Date: 20140421
  Receipt Date: 20140421
  Transmission Date: 20141212
  Serious: No
  Sender: FDA-Public Use
  Company Number: US-PURDUE-USA-2004-0016577

PATIENT
  Age: 68 Year
  Sex: Male

DRUGS (2)
  1. OXYIR CAPSULES 5 MG [Suspect]
     Indication: PAIN
  2. UNKNOWN [Concomitant]
     Indication: PRODUCT USED FOR UNKNOWN INDICATION

REACTIONS (2)
  - Feeling hot [Unknown]
  - Pruritus [Unknown]
